FAERS Safety Report 11021250 (Version 1)
Quarter: 2015Q2

REPORT INFORMATION
  Report Type: Spontaneous
  Country: US (occurrence: US)
  Receive Date: 20150413
  Receipt Date: 20150413
  Transmission Date: 20150821
  Serious: Yes (Death, Life-Threatening, Hospitalization)
  Sender: FDA-Public Use
  Company Number: US-SA-2015SA043718

PATIENT
  Age: 40 Year
  Sex: Male
  Weight: 81.6 kg

DRUGS (9)
  1. REMODULIN [Suspect]
     Active Substance: TREPROSTINIL
     Indication: PULMONARY ARTERIAL HYPERTENSION
     Dosage: FREQUENCY:PER MINUTE CONTINEOUS
     Route: 058
     Dates: start: 20130327, end: 20141215
  2. WARFARIN [Concomitant]
     Active Substance: WARFARIN
  3. LANOXIN [Concomitant]
     Active Substance: DIGOXIN
  4. K-TAB [Concomitant]
     Active Substance: POTASSIUM CHLORIDE
  5. LASIX [Suspect]
     Active Substance: FUROSEMIDE
     Route: 065
  6. LETAIRIS [Suspect]
     Active Substance: AMBRISENTAN
     Indication: PULMONARY HYPERTENSION
     Route: 048
     Dates: end: 2014
  7. ALDACTONE [Concomitant]
     Active Substance: SPIRONOLACTONE
  8. REMODULIN [Suspect]
     Active Substance: TREPROSTINIL
     Indication: PULMONARY ARTERIAL HYPERTENSION
     Route: 065
     Dates: start: 20141216
  9. DILTIAZEM [Concomitant]
     Active Substance: DILTIAZEM

REACTIONS (7)
  - Pneumonia [Unknown]
  - Cardiac failure congestive [Unknown]
  - Dyspnoea [Unknown]
  - Hypertension [Unknown]
  - Pulmonary arterial hypertension [Unknown]
  - Ventricular fibrillation [Fatal]
  - Acute respiratory failure [Fatal]

NARRATIVE: CASE EVENT DATE: 20141202
